FAERS Safety Report 16687543 (Version 1)
Quarter: 2019Q4

REPORT INFORMATION
  Report Type: Spontaneous
  Country: US (occurrence: US)
  Receive Date: 20190808
  Receipt Date: 20190808
  Transmission Date: 20200122
  Serious: Yes (Hospitalization)
  Sender: FDA-Public Use
  Company Number: None

PATIENT
  Age: 61 Year
  Sex: Female

DRUGS (4)
  1. OXYCONTIN [Concomitant]
     Active Substance: OXYCODONE HYDROCHLORIDE
  2. IBRANCE [Suspect]
     Active Substance: PALBOCICLIB
     Indication: BREAST CANCER
     Route: 048
     Dates: start: 20180308
  3. OXYCODONE [Concomitant]
     Active Substance: OXYCODONE
  4. LETROZOLE. [Concomitant]
     Active Substance: LETROZOLE

REACTIONS (5)
  - Constipation [None]
  - Nausea [None]
  - Vomiting [None]
  - Gallbladder operation [None]
  - Diarrhoea [None]

NARRATIVE: CASE EVENT DATE: 20190801
